FAERS Safety Report 8163422-1 (Version None)
Quarter: 2012Q1

REPORT INFORMATION
  Report Type: 
  Country: None (occurrence: None)
  Receive Date: 20120224
  Receipt Date: 20120221
  Transmission Date: 20120608
  Serious: No
  Sender: FDA-Public Use
  Company Number: US-BAYER-2012-017221

PATIENT
  Sex: Male
  Weight: 83.9 kg

DRUGS (1)
  1. BETASERON [Suspect]
     Dosage: 1 ML, QOD
     Route: 058

REACTIONS (1)
  - GAIT DISTURBANCE [None]
